FAERS Safety Report 24232590 (Version 1)
Quarter: 2024Q3

REPORT INFORMATION
  Report Type: Spontaneous
  Country: CA (occurrence: CA)
  Receive Date: 20240821
  Receipt Date: 20240821
  Transmission Date: 20241017
  Serious: Yes (Other)
  Sender: ACCORD
  Company Number: None

PATIENT
  Age: 33 Year
  Sex: Male

DRUGS (2)
  1. METHOTREXATE [Suspect]
     Active Substance: METHOTREXATE
     Indication: Crohn^s disease
     Route: 065
  2. HUMIRA [Concomitant]
     Active Substance: ADALIMUMAB
     Dosage: SOLUTION,1 EVERY 1 WEEKS
     Route: 058

REACTIONS (4)
  - C-reactive protein increased [Recovered/Resolved]
  - Faecal calprotectin increased [Recovered/Resolved]
  - Off label use [Recovered/Resolved]
  - Small intestinal stenosis [Recovered/Resolved]
